FAERS Safety Report 9044021 (Version 1)
Quarter: 2013Q1

REPORT INFORMATION
  Report Type: Report from Study
  Country: US (occurrence: US)
  Receive Date: 20130130
  Receipt Date: 20130130
  Transmission Date: 20140127
  Serious: No
  Sender: FDA-Public Use
  Company Number: US-ABBOTT-12P-163-0950204-00

PATIENT
  Age: 31 Year
  Sex: Female

DRUGS (6)
  1. HUMIRA 40 MG/0.8 ML PEN [Suspect]
     Indication: CROHN^S DISEASE
     Dosage: LOADING DOSE
     Dates: start: 20120621
  2. PREDNISONE [Concomitant]
     Indication: CROHN^S DISEASE
  3. APRISO [Concomitant]
     Indication: CROHN^S DISEASE
  4. LORTAB [Concomitant]
     Indication: PAIN
  5. ELAVIL [Concomitant]
     Indication: ANXIETY
     Dosage: AT BEDTIME
  6. PRILOSEC [Concomitant]
     Indication: GASTROOESOPHAGEAL REFLUX DISEASE

REACTIONS (1)
  - Influenza like illness [Recovered/Resolved]
